FAERS Safety Report 4440331-2 (Version None)
Quarter: 2004Q3

REPORT INFORMATION
  Report Type: 
  Country: None (occurrence: None)
  Receive Date: 20040831
  Receipt Date: 20040825
  Transmission Date: 20050211
  Serious: Yes (Hospitalization)
  Sender: FDA-Public Use
  Company Number: STA-AE-04-MTX-384

PATIENT
  Age: 65 Year

DRUGS (2)
  1. METHOTREXATE [Suspect]
     Indication: POLYARTHRITIS
     Dosage: 10 MG 1X PER 1 WK, ORAL
     Route: 048
     Dates: start: 20020911, end: 20040715
  2. ENBREL [Suspect]
     Indication: POLYARTHRITIS
     Dosage: 25 MG 2X PER 1 WK, SC
     Route: 058
     Dates: start: 20030516, end: 20040715

REACTIONS (2)
  - CHEST PAIN [None]
  - NON-HODGKIN'S LYMPHOMA [None]
